FAERS Safety Report 7443661-5 (Version None)
Quarter: 2011Q2

REPORT INFORMATION
  Report Type: 
  Country: None (occurrence: None)
  Receive Date: 20110428
  Receipt Date: 20110426
  Transmission Date: 20111010
  Serious: Yes (Hospitalization)
  Sender: FDA-Public Use
  Company Number: FR-SANOFI-AVENTIS-2011SA025510

PATIENT
  Age: 60 Year
  Sex: Male

DRUGS (8)
  1. DESFERAL [Suspect]
     Route: 065
     Dates: start: 20090101, end: 20110227
  2. PHENOXYMETHYL PENICILLIN [Concomitant]
  3. HYDREA [Concomitant]
  4. SOTALOL HCL [Concomitant]
  5. PAROXETINE HCL [Concomitant]
  6. SOLU-MEDROL [Concomitant]
  7. PLAVIX [Suspect]
     Route: 048
  8. ACTONEL [Concomitant]

REACTIONS (2)
  - PARAESTHESIA [None]
  - OPTIC NEURITIS [None]
